FAERS Safety Report 21883194 (Version 4)
Quarter: 2023Q2

REPORT INFORMATION
  Report Type: Report from Study
  Country: GB (occurrence: GB)
  Receive Date: 20230119
  Receipt Date: 20230426
  Transmission Date: 20230721
  Serious: Yes (Death, Other)
  Sender: FDA-Public Use
  Company Number: GB-TAKEDA-2023TUS005335

PATIENT
  Age: 76 Year
  Sex: Female
  Weight: 54 kg

DRUGS (23)
  1. ICATIBANT [Suspect]
     Active Substance: ICATIBANT ACETATE
     Indication: Hereditary angioedema
     Dosage: UNK
     Route: 065
  2. ICATIBANT [Suspect]
     Active Substance: ICATIBANT ACETATE
     Indication: Hereditary angioedema
     Dosage: UNK
     Route: 065
  3. NITROFURANTOIN [Concomitant]
     Active Substance: NITROFURANTOIN
     Indication: Urinary tract infection
     Dosage: 100 MILLIGRAM
     Route: 048
     Dates: start: 20170619, end: 20170626
  4. RASBURICASE [Concomitant]
     Active Substance: RASBURICASE
     Dosage: 3 MILLIGRAM
     Route: 042
     Dates: start: 20190717
  5. RASBURICASE [Concomitant]
     Active Substance: RASBURICASE
     Dosage: 12 MILLIGRAM
     Route: 042
     Dates: start: 20190720
  6. PREDNISOLONE [Concomitant]
     Active Substance: PREDNISOLONE
     Dosage: 50 MILLIGRAM
     Route: 048
     Dates: start: 20190717
  7. PREDNISOLONE [Concomitant]
     Active Substance: PREDNISOLONE
     Dosage: 50 MILLIGRAM
     Route: 048
     Dates: start: 20190718
  8. METHYLPREDNISOLONE [Concomitant]
     Active Substance: METHYLPREDNISOLONE
     Dosage: 500 MILLIGRAM
     Route: 042
     Dates: start: 20190720
  9. AMLODIPINE [Concomitant]
     Active Substance: AMLODIPINE BESYLATE
     Indication: Prophylaxis
     Dosage: 5 MILLIGRAM
     Route: 048
     Dates: start: 20190720
  10. ENOXAPARIN [Concomitant]
     Active Substance: ENOXAPARIN
     Indication: Prophylaxis
     Dosage: 40 MILLIGRAM, QD
     Route: 058
     Dates: start: 20190712
  11. PIPERACILLIN SODIUM\TAZOBACTAM SODIUM [Concomitant]
     Active Substance: PIPERACILLIN SODIUM\TAZOBACTAM SODIUM
     Indication: Sepsis
     Dosage: 4.5 GRAM, TID
     Route: 042
     Dates: start: 20190712
  12. MEROPENEM [Concomitant]
     Active Substance: MEROPENEM
     Indication: Sepsis
     Dosage: 1 GRAM, TID
     Route: 042
     Dates: start: 20190719
  13. ACLIDINIUM BROMIDE\FORMOTEROL FUMARATE [Concomitant]
     Active Substance: ACLIDINIUM BROMIDE\FORMOTEROL FUMARATE
     Dosage: UNK UNK, BID
     Route: 055
     Dates: start: 20190712
  14. BECLOMETHASONE DIPROPIONATE [Concomitant]
     Active Substance: BECLOMETHASONE DIPROPIONATE
     Dosage: UNK UNK, BID
     Dates: start: 20190712
  15. METOCLOPRAMIDE [Concomitant]
     Active Substance: METOCLOPRAMIDE
     Dosage: 10 MILLIGRAM, TID
     Route: 048
     Dates: start: 20190716
  16. ALLOPURINOL [Concomitant]
     Active Substance: ALLOPURINOL
     Dosage: 300 MILLIGRAM, QD
     Route: 048
     Dates: start: 20190719
  17. FRESUBIN [Concomitant]
     Active Substance: AMINO ACIDS\DEXTROSE\ELECTROLYTES NOS\SOYBEAN OIL\VITAMINS
     Dosage: 200 MILLILITER, TID
     Route: 048
     Dates: start: 20190719
  18. CARBOHYDRATES\FATTY ACIDS\MINERALS\PROTEIN\VITAMINS [Concomitant]
     Active Substance: CARBOHYDRATES\FATTY ACIDS\MINERALS\PROTEIN\VITAMINS
     Dosage: 125 MILLILITER, TID
     Route: 048
     Dates: start: 20190719
  19. POTASSIUM BICARBONATE\POTASSIUM CHLORIDE [Concomitant]
     Active Substance: POTASSIUM BICARBONATE\POTASSIUM CHLORIDE
     Dosage: UNK UNK, TID
     Route: 065
     Dates: start: 20190719
  20. ACETAMINOPHEN [Concomitant]
     Active Substance: ACETAMINOPHEN
     Dosage: 1 GRAM
     Route: 048
     Dates: start: 20190712, end: 20190720
  21. ALBUTEROL [Concomitant]
     Active Substance: ALBUTEROL
     Dosage: UNK
     Route: 050
     Dates: start: 20190720, end: 20190720
  22. SCOPOLAMINE HYDROBROMIDE [Concomitant]
     Active Substance: SCOPOLAMINE HYDROBROMIDE
     Dosage: 200 MICROGRAM
     Route: 042
     Dates: start: 20190721, end: 20190721
  23. MIDAZOLAM [Concomitant]
     Active Substance: MIDAZOLAM
     Dosage: UNK
     Route: 058
     Dates: start: 20190721, end: 20190721

REACTIONS (3)
  - Lymphoma [Fatal]
  - Acute hepatic failure [Fatal]
  - Circulatory collapse [Fatal]

NARRATIVE: CASE EVENT DATE: 20190720
